FAERS Safety Report 5945904-3 (Version None)
Quarter: 2008Q4

REPORT INFORMATION
  Report Type: 
  Country: None (occurrence: None)
  Receive Date: 20081105
  Receipt Date: 20081022
  Transmission Date: 20090506
  Serious: Yes (Death, Hospitalization)
  Sender: FDA-Public Use
  Company Number: B0544517A

PATIENT
  Age: 62 Year
  Sex: Male

DRUGS (4)
  1. MELPHALAN (FORMULATION UNKNOWN) (GENERIC) (MELPHALAN) [Suspect]
     Indication: MYELODYSPLASTIC SYNDROME TRANSFORMATION
  2. FLUDARABINE PHOSPHATE [Suspect]
     Indication: REFRACTORY ANAEMIA WITH AN EXCESS OF BLASTS
  3. ALEMTUZUMAB (FORMULATION UNKNOWN) (ALEMTUZUMAB) [Suspect]
  4. CYCLOSPORINE [Suspect]

REACTIONS (9)
  - DYSPHAGIA [None]
  - DYSPNOEA [None]
  - EPSTEIN-BARR VIRUS ASSOCIATED LYMPHOPROLIFERATIVE DISORDER [None]
  - EPSTEIN-BARR VIRUS INFECTION [None]
  - HYPOXIA [None]
  - MALAISE [None]
  - NASOPHARYNGEAL NEOPLASM BENIGN [None]
  - OROPHARYNGEAL PAIN [None]
  - PYREXIA [None]
